FAERS Safety Report 4898738-5 (Version None)
Quarter: 2006Q1

REPORT INFORMATION
  Report Type: 
  Country: None (occurrence: None)
  Receive Date: 20060127
  Receipt Date: 20060110
  Transmission Date: 20060701
  Serious: Yes (Disabling)
  Sender: FDA-Public Use
  Company Number: USA0508104993

PATIENT
  Age: 43 Year
  Sex: Male
  Weight: 92.3 kg

DRUGS (1)
  1. STRATTERA [Suspect]
     Dosage: 10 MG, ORAL
     Route: 048

REACTIONS (10)
  - ADRENAL ADENOMA [None]
  - ANXIETY [None]
  - BENIGN NEOPLASM OF ADRENAL GLAND [None]
  - BLOOD PRESSURE INCREASED [None]
  - CHEST PAIN [None]
  - ERYTHEMA [None]
  - GANGLIONEUROMA [None]
  - IMPAIRED WORK ABILITY [None]
  - LIPIDS INCREASED [None]
  - PALLOR [None]
